FAERS Safety Report 7112246-2 (Version None)
Quarter: 2010Q4

REPORT INFORMATION
  Report Type: 
  Country: None (occurrence: None)
  Receive Date: 20101119
  Receipt Date: 20100423
  Transmission Date: 20110411
  Serious: No
  Sender: FDA-Public Use
  Company Number: A0856491A

PATIENT
  Age: 78 Year
  Sex: Male

DRUGS (8)
  1. AVODART [Suspect]
     Dosage: .5MG PER DAY
     Route: 048
  2. LOPRESSOR [Concomitant]
  3. NORVASK [Concomitant]
  4. DIOVAN [Concomitant]
  5. CRESTOR [Concomitant]
  6. PROTONIX [Concomitant]
  7. ASPIRIN [Concomitant]
  8. UROXATRAL [Concomitant]

REACTIONS (1)
  - PLATELET COUNT DECREASED [None]
